FAERS Safety Report 11159874 (Version 2)
Quarter: 2017Q1

REPORT INFORMATION
  Report Type: Spontaneous
  Country: US (occurrence: US)
  Receive Date: 20150603
  Receipt Date: 20170104
  Transmission Date: 20170428
  Serious: Yes (Hospitalization, Other)
  Sender: FDA-Public Use
  Company Number: US-MYLANLABS-2015M1018587

PATIENT

DRUGS (4)
  1. VANCOMYCIN [Concomitant]
     Active Substance: VANCOMYCIN
     Indication: CLOSTRIDIAL SEPSIS
     Route: 042
  2. METRONIDAZOLE. [Concomitant]
     Active Substance: METRONIDAZOLE
     Indication: CLOSTRIDIAL SEPSIS
     Route: 042
  3. PIPERACILLIN/TAZOBACTAM [Suspect]
     Active Substance: PIPERACILLIN SODIUM\TAZOBACTAM SODIUM
     Indication: CLOSTRIDIAL SEPSIS
     Route: 065
  4. VANCOMYCIN [Concomitant]
     Active Substance: VANCOMYCIN
     Dosage: UNK
     Route: 048

REACTIONS (7)
  - Haemolytic anaemia [Recovering/Resolving]
  - Pulse absent [Unknown]
  - Brain injury [Unknown]
  - Renal failure [Recovered/Resolved]
  - Lactic acidosis [Unknown]
  - Haemolysis [Recovering/Resolving]
  - Haemoglobinuria [Unknown]
